FAERS Safety Report 10596694 (Version 1)
Quarter: 2014Q4

REPORT INFORMATION
  Report Type: Spontaneous
  Country: US (occurrence: US)
  Receive Date: 20141120
  Receipt Date: 20141120
  Transmission Date: 20150529
  Serious: Yes (Death)
  Sender: FDA-Public Use
  Company Number: US-BAUSCH-BL-2014-008515

PATIENT
  Age: 57 Year
  Sex: Female

DRUGS (1)
  1. XENAZINE [Suspect]
     Active Substance: TETRABENAZINE
     Indication: HUNTINGTON^S DISEASE
     Dosage: 4 TABLETS DAILY
     Route: 048
     Dates: start: 201012, end: 20141105

REACTIONS (1)
  - Death [Fatal]

NARRATIVE: CASE EVENT DATE: 20141105
